FAERS Safety Report 18796598 (Version 2)
Quarter: 2021Q1

REPORT INFORMATION
  Report Type: Spontaneous
  Country: GB (occurrence: GB)
  Receive Date: 20210128
  Receipt Date: 20210324
  Transmission Date: 20210419
  Serious: Yes (Other)
  Sender: FDA-Public Use
  Company Number: GB-AUROBINDO-AUR-APL-2021-002838

PATIENT
  Age: 79 Year
  Sex: Female

DRUGS (3)
  1. GLYCERYL TRINITRATE [Concomitant]
     Active Substance: NITROGLYCERIN
     Indication: ANGINA PECTORIS
     Dosage: 400 MICROGRAM (2 SPRAYS UNDER MY TONGUE)
     Route: 065
  2. LOSARTAN FILM?COATED TABLETS [Suspect]
     Active Substance: LOSARTAN
     Indication: BLOOD PRESSURE INCREASED
     Dosage: 12.5 MILLIGRAM, ONCE A DAY ((3 DOSES, 1 EACH NIGHT FOR 3 DAYS.))
     Route: 048
     Dates: start: 20201215, end: 20201218
  3. FOSTAIR [Concomitant]
     Active Substance: BECLOMETHASONE\FORMOTEROL
     Indication: ASTHMA
     Dosage: 1 DOSAGE FORM, ONCE A DAY (EVERY MORNING)
     Route: 065

REACTIONS (5)
  - Palpitations [Recovered/Resolved]
  - Musculoskeletal chest pain [Recovered/Resolved]
  - Heart rate increased [Recovered/Resolved]
  - Chest pain [Recovered/Resolved]
  - Cough [Recovered/Resolved]

NARRATIVE: CASE EVENT DATE: 20201217
